FAERS Safety Report 14962158 (Version 1)
Quarter: 2018Q2

REPORT INFORMATION
  Report Type: Spontaneous
  Country: PE (occurrence: PE)
  Receive Date: 20180601
  Receipt Date: 20180601
  Transmission Date: 20180711
  Serious: Yes (Other)
  Sender: FDA-Public Use
  Company Number: PE-MERCK KGAA-2048849

PATIENT
  Sex: Female

DRUGS (3)
  1. EUTIROX [Suspect]
     Active Substance: LEVOTHYROXINE SODIUM
  2. NOVOTHYROX [Suspect]
     Active Substance: LEVOTHYROXINE SODIUM
     Indication: HYPOTHYROIDISM
  3. EUTIROX [Suspect]
     Active Substance: LEVOTHYROXINE SODIUM

REACTIONS (6)
  - Blood pressure increased [Recovering/Resolving]
  - Glucose tolerance impaired [Recovering/Resolving]
  - Arrhythmia [Recovering/Resolving]
  - Hyperthyroidism [Recovering/Resolving]
  - Asthma [Recovering/Resolving]
  - Heart rate decreased [Recovering/Resolving]
